FAERS Safety Report 7151487 (Version 7)
Quarter: 2012Q4

REPORT INFORMATION
  Report Type: Report from Study
  Country: US (occurrence: US)
  Receive Date: 20091016
  Receipt Date: 20121219
  Transmission Date: 20130627
  Serious: Yes (Hospitalization)
  Sender: FDA-Public Use
  Company Number: US-JNJFOC-20091003632

PATIENT
  Age: 13 Year
  Sex: Female
  Weight: 32.93 kg

DRUGS (11)
  1. INFLIXIMAB [Suspect]
     Indication: INFLAMMATORY BOWEL DISEASE
     Route: 042
     Dates: start: 20060315, end: 20070301
  2. ASPIRIN [Suspect]
     Indication: PRODUCT USED FOR UNKNOWN INDICATION
  3. TYLENOL [Concomitant]
  4. 5-AMINOSALICYLIC ACID [Concomitant]
     Route: 048
  5. FERROUS SULFATE [Concomitant]
  6. OMEGA 3 FATTY ACID [Concomitant]
  7. KENALOG [Concomitant]
  8. MULTIVITAMINS [Concomitant]
  9. FLUCONAZOLE [Concomitant]
     Route: 048
  10. AUGMENTIN [Concomitant]
  11. PERCOCET [Concomitant]

REACTIONS (4)
  - Wound dehiscence [Recovered/Resolved]
  - Gastrointestinal haemorrhage [Recovered/Resolved]
  - Peripheral artery thrombosis [Unknown]
  - Hypochromic anaemia [Unknown]
